FAERS Safety Report 23894474 (Version 1)
Quarter: 2024Q2

REPORT INFORMATION
  Report Type: Spontaneous
  Country: US (occurrence: None)
  Receive Date: 20240524
  Receipt Date: 20240524
  Transmission Date: 20240716
  Serious: No
  Sender: FDA-Public Use
  Company Number: US-ROCHE-3354206

PATIENT
  Sex: Female

DRUGS (7)
  1. OCREVUS [Suspect]
     Active Substance: OCRELIZUMAB
     Indication: Product used for unknown indication
     Dosage: UNKNOWN
     Route: 042
     Dates: start: 2018
  2. KESIMPTA [Concomitant]
     Active Substance: OFATUMUMAB
  3. BETASERON [Concomitant]
     Active Substance: INTERFERON BETA-1B
  4. COPAXONE [Concomitant]
     Active Substance: GLATIRAMER ACETATE
  5. TECFIDERA [Concomitant]
     Active Substance: DIMETHYL FUMARATE
  6. TYSABRI [Concomitant]
     Active Substance: NATALIZUMAB
  7. GILENYA [Concomitant]
     Active Substance: FINGOLIMOD HYDROCHLORIDE

REACTIONS (1)
  - Therapeutic response decreased [Unknown]
